FAERS Safety Report 15372943 (Version 1)
Quarter: 2018Q4

REPORT INFORMATION
  Report Type: Spontaneous
  Country: ES (occurrence: ES)
  Receive Date: 20180912
  Receipt Date: 20180912
  Transmission Date: 20190204
  Serious: Yes (Life-Threatening, Other)
  Sender: FDA-Public Use
  Company Number: ES-AXELLIA-001957

PATIENT
  Age: 58 Year
  Sex: Male

DRUGS (19)
  1. FUROSEMIDE. [Interacting]
     Active Substance: FUROSEMIDE
     Indication: PRODUCT USED FOR UNKNOWN INDICATION
     Route: 048
     Dates: start: 20180724, end: 20180816
  2. LORMETAZEPAM [Concomitant]
     Active Substance: LORMETAZEPAM
     Route: 048
  3. PARACETAMOL [Concomitant]
     Active Substance: ACETAMINOPHEN
     Indication: PYREXIA
     Route: 042
     Dates: start: 20180722, end: 20180725
  4. OMEPRAZOLE. [Concomitant]
     Active Substance: OMEPRAZOLE
  5. FLUCONAZOLE. [Concomitant]
     Active Substance: FLUCONAZOLE
     Route: 042
     Dates: start: 20180813
  6. CORENITEC [Interacting]
     Active Substance: ENALAPRIL\HYDROCHLOROTHIAZIDE
     Indication: HYPERTENSION
     Dosage: FOR BREAKFAST
     Route: 048
     Dates: start: 20180721, end: 20180816
  7. GASTROGRAFIN [Interacting]
     Active Substance: DIATRIZOATE MEGLUMINE\DIATRIZOATE SODIUM
     Indication: COMPUTERISED TOMOGRAM ABDOMEN
     Dosage: FOR PERFORMING VARIOUS ABDOMINAL TAC
     Route: 048
     Dates: start: 20180723
  8. AMOXICILLIN TRIHYDRATE/CLAVULANATE POTASSIUM [Concomitant]
     Route: 042
     Dates: start: 20180719, end: 20180719
  9. FLUOXETINE [Concomitant]
     Active Substance: FLUOXETINE HYDROCHLORIDE
     Route: 048
  10. CLEXANE [Concomitant]
     Active Substance: ENOXAPARIN SODIUM
     Route: 058
  11. INSULIN [Concomitant]
     Active Substance: INSULIN NOS
     Dosage: RAPID INSULIN IN SERUMS
     Route: 042
  12. KONAKION [Concomitant]
     Active Substance: PHYTONADIONE
     Route: 042
  13. ADOLONTA [Concomitant]
     Active Substance: TRAMADOL HYDROCHLORIDE
     Route: 042
  14. VANCOMYCIN [Suspect]
     Active Substance: VANCOMYCIN
     Indication: PANCREATITIS ACUTE
     Dosage: 1G/12H
     Route: 042
     Dates: start: 20180731, end: 20180816
  15. IMIPENEM AND CILASTATIN [Interacting]
     Active Substance: CILASTATIN SODIUM\IMIPENEM
     Indication: PANCREATITIS ACUTE
     Dosage: FIRST EVERY 6 HOURS, ON 16-AUG-2018 EVERY 8 HOURS AND ON 17-AUG-2018 EVERY 12 HOURS
     Route: 042
     Dates: start: 20180721, end: 20180823
  16. NICARDIPINE [Concomitant]
     Active Substance: NICARDIPINE
     Indication: HYPERTENSION
     Dosage: FOR BREAKFAST
     Route: 048
     Dates: start: 201807, end: 20180816
  17. NOLOTIL (METAMIZOLE MAGNESIUM) [Concomitant]
     Active Substance: METAMIZOLE MAGNESIUM
     Route: 042
  18. PRIMPERAN [Concomitant]
     Active Substance: METOCLOPRAMIDE HYDROCHLORIDE
     Route: 042
  19. PIPERACILLIN/TAZOBACTAM [Concomitant]
     Indication: PANCREATITIS ACUTE
     Dosage: 4G/6H
     Route: 042
     Dates: start: 20180721, end: 20180721

REACTIONS (2)
  - Nephropathy toxic [Unknown]
  - Drug interaction [Unknown]

NARRATIVE: CASE EVENT DATE: 20180815
